FAERS Safety Report 7502357-1 (Version None)
Quarter: 2011Q2

REPORT INFORMATION
  Report Type: 
  Country: None (occurrence: None)
  Receive Date: 20110525
  Receipt Date: 20110520
  Transmission Date: 20111010
  Serious: Yes (Death, Hospitalization, Other)
  Sender: FDA-Public Use
  Company Number: US-ASTELLAS-2011US002311

PATIENT
  Sex: Male
  Weight: 59 kg

DRUGS (1)
  1. PROGRAF [Suspect]
     Indication: RENAL TRANSPLANT
     Dosage: UNK
     Route: 065
     Dates: start: 20071030, end: 20090201

REACTIONS (12)
  - CONVULSION [None]
  - DECREASED IMMUNE RESPONSIVENESS [None]
  - HEPATIC CYST [None]
  - MULTI-ORGAN FAILURE [None]
  - RENAL CYST [None]
  - ASTHENIA [None]
  - SMALL INTESTINAL OBSTRUCTION [None]
  - COMA [None]
  - RENAL FAILURE [None]
  - BACTERIAL INFECTION [None]
  - AMNESIA [None]
  - DEATH [None]
